FAERS Safety Report 20637941 (Version 1)
Quarter: 2022Q1

REPORT INFORMATION
  Report Type: Spontaneous
  Country: US (occurrence: None)
  Receive Date: 20220324
  Receipt Date: 20220324
  Transmission Date: 20220423
  Serious: Yes (Death)
  Sender: FDA-Public Use
  Company Number: None

PATIENT
  Age: 68 Year
  Sex: Male
  Weight: 76 kg

DRUGS (18)
  1. DUVELISIB [Suspect]
     Active Substance: DUVELISIB
     Indication: Bone cancer
     Dosage: 25MG BID ORAL?
     Route: 048
     Dates: start: 20220110, end: 20220306
  2. DUVELISIB [Suspect]
     Active Substance: DUVELISIB
     Indication: Metastases to lung
  3. DUVELISIB [Suspect]
     Active Substance: DUVELISIB
     Indication: Metastases to bone
  4. DUVELISIB [Suspect]
     Active Substance: DUVELISIB
     Indication: Lip and/or oral cavity cancer
  5. DOCETAXEL [Suspect]
     Active Substance: DOCETAXEL
     Indication: Bone cancer
     Dosage: 75MG/M2   Q21D IV
     Route: 042
     Dates: start: 20220118, end: 20220301
  6. DOCETAXEL [Suspect]
     Active Substance: DOCETAXEL
     Indication: Metastases to lung
  7. DOCETAXEL [Suspect]
     Active Substance: DOCETAXEL
     Indication: Metastases to bone
  8. DOCETAXEL [Suspect]
     Active Substance: DOCETAXEL
     Indication: Lip and/or oral cavity cancer
  9. ACETAMINOPHEN [Concomitant]
     Active Substance: ACETAMINOPHEN
  10. CANAGLIFLOZIN [Concomitant]
     Active Substance: CANAGLIFLOZIN
  11. CHLORHEXIDINE GLUCONATE [Concomitant]
     Active Substance: CHLORHEXIDINE GLUCONATE
  12. DEXAMETHASONE [Concomitant]
     Active Substance: DEXAMETHASONE
  13. METFORMIN HYDROCHLORIDE [Concomitant]
     Active Substance: METFORMIN HYDROCHLORIDE
  14. MONTELUKAST [Concomitant]
     Active Substance: MONTELUKAST SODIUM
  15. MORPHINE SULFATE [Concomitant]
     Active Substance: MORPHINE SULFATE
  16. PILOCARPINE HYDROCHLORIDE [Concomitant]
     Active Substance: PILOCARPINE HYDROCHLORIDE
  17. Polyehtylene Glycol [Concomitant]
  18. SULFAMETHOXAZOLE\TRIMETHOPRIM [Concomitant]
     Active Substance: SULFAMETHOXAZOLE\TRIMETHOPRIM

REACTIONS (6)
  - Vomiting [None]
  - Abdominal distension [None]
  - Disease progression [None]
  - Pulmonary haemorrhage [None]
  - Pulmonary thrombosis [None]
  - General physical health deterioration [None]

NARRATIVE: CASE EVENT DATE: 20220323
